FAERS Safety Report 5611018-5 (Version None)
Quarter: 2008Q1

REPORT INFORMATION
  Report Type: 
  Country: None (occurrence: None)
  Receive Date: 20080201
  Receipt Date: 20080128
  Transmission Date: 20080703
  Serious: Yes (Hospitalization)
  Sender: FDA-Public Use
  Company Number: B0501543A

PATIENT
  Age: 71 Year
  Sex: Female
  Weight: 70 kg

DRUGS (1)
  1. ROPINIROLE HCL [Suspect]
     Indication: RESTLESS LEGS SYNDROME
     Route: 048
     Dates: start: 20070627

REACTIONS (4)
  - BRAIN STEM ISCHAEMIA [None]
  - DIPLOPIA [None]
  - HYPERLIPIDAEMIA [None]
  - HYPOAESTHESIA FACIAL [None]
